FAERS Safety Report 5863034-6 (Version None)
Quarter: 2008Q3

REPORT INFORMATION
  Report Type: 
  Country: None (occurrence: None)
  Receive Date: 20080828
  Receipt Date: 20080825
  Transmission Date: 20090109
  Serious: Yes (Other)
  Sender: FDA-Public Use
  Company Number: US-GILEAD-2008-0016115

PATIENT
  Sex: Male
  Weight: 85.806 kg

DRUGS (3)
  1. TRUVADA [Suspect]
     Indication: HEPATITIS B
     Route: 048
     Dates: start: 20061001, end: 20080101
  2. TRUVADA [Suspect]
     Route: 048
     Dates: start: 20080415
  3. UROXATRAL [Concomitant]
     Indication: PROSTATISM
     Dates: start: 20071001

REACTIONS (1)
  - CHROMATURIA [None]
